FAERS Safety Report 4950119-1 (Version None)
Quarter: 2006Q1

REPORT INFORMATION
  Report Type: 
  Country: None (occurrence: None)
  Receive Date: 20060322
  Receipt Date: 20051228
  Transmission Date: 20060701
  Serious: Yes (Hospitalization, Disabling)
  Sender: FDA-Public Use
  Company Number: 2005AP06620

PATIENT
  Age: 23767 Day
  Sex: Female
  Weight: 61.2 kg

DRUGS (18)
  1. DIPRIVAN [Suspect]
     Indication: INDUCTION AND MAINTENANCE OF ANAESTHESIA
     Route: 042
     Dates: start: 20051221, end: 20051221
  2. PENTCILLIN [Suspect]
     Indication: INFECTION PROPHYLAXIS
     Route: 042
     Dates: start: 20051221, end: 20051222
  3. XYLOCAINE [Concomitant]
     Indication: INFILTRATION ANAESTHESIA
     Route: 061
     Dates: start: 20051221, end: 20051221
  4. VEEN-3G [Concomitant]
     Indication: FLUID REPLACEMENT
     Route: 042
     Dates: start: 20051221, end: 20051224
  5. PHYSIO 140 [Concomitant]
     Indication: FLUID REPLACEMENT
     Route: 042
     Dates: start: 20051221, end: 20051221
  6. PHYSIO 140 [Concomitant]
     Route: 042
     Dates: start: 20051221, end: 20051224
  7. CERCINE [Concomitant]
     Indication: ANXIETY
     Route: 048
     Dates: start: 20051221, end: 20051221
  8. GASTER [Concomitant]
     Indication: GASTROINTESTINAL DISORDER
     Route: 048
     Dates: start: 20051221, end: 20051221
  9. PRIMPERAN TAB [Concomitant]
     Indication: PROPHYLAXIS OF NAUSEA AND VOMITING
     Route: 042
     Dates: start: 20051221, end: 20051221
  10. KETALAR [Concomitant]
     Indication: INDUCTION OF ANAESTHESIA
     Route: 042
     Dates: start: 20051221, end: 20051221
  11. MUSCULAX [Concomitant]
     Indication: HYPOTONIA
     Route: 042
     Dates: start: 20051221, end: 20051221
  12. FENTANEST [Concomitant]
     Indication: INDUCTION OF ANAESTHESIA
     Route: 042
     Dates: start: 20051221, end: 20051221
  13. ATROPINE SULPHATE [Concomitant]
     Indication: HEART RATE DECREASED
     Route: 042
     Dates: start: 20051221, end: 20051221
  14. ATROPINE SULPHATE [Concomitant]
     Route: 042
     Dates: start: 20051221, end: 20051221
  15. ROPION [Concomitant]
     Indication: PAIN
     Dates: start: 20051221, end: 20051221
  16. MIRACLID [Concomitant]
     Indication: PANCREATITIS
     Route: 042
     Dates: start: 20051221, end: 20051221
  17. NEOSTIGMINE METHYLSULFATE [Concomitant]
     Route: 042
     Dates: start: 20051221, end: 20051221
  18. KAKODIN [Concomitant]
     Route: 041
     Dates: start: 20051221, end: 20051222

REACTIONS (3)
  - LIVER DISORDER [None]
  - PLATELET COUNT DECREASED [None]
  - RENAL DISORDER [None]
